FAERS Safety Report 19874613 (Version 1)
Quarter: 2021Q3

REPORT INFORMATION
  Report Type: Spontaneous
  Country: US (occurrence: US)
  Receive Date: 20210922
  Receipt Date: 20210922
  Transmission Date: 20211014
  Serious: Yes (Other)
  Sender: FDA-Public Use
  Company Number: US-UCBSA-2021018863

PATIENT
  Sex: Male

DRUGS (7)
  1. CIMZIA [Suspect]
     Active Substance: CERTOLIZUMAB PEGOL
     Indication: SELECTIVE IGG SUBCLASS DEFICIENCY
  2. CIMZIA [Suspect]
     Active Substance: CERTOLIZUMAB PEGOL
     Indication: BLOOD IMMUNOGLOBULIN M INCREASED
  3. CIMZIA [Suspect]
     Active Substance: CERTOLIZUMAB PEGOL
     Indication: PSORIASIS
     Dosage: 400 MILLIGRAM, EV 4 WEEKS
     Route: 058
     Dates: start: 202010
  4. HIZENTRA [Concomitant]
     Active Substance: HUMAN IMMUNOGLOBULIN G
     Indication: PRODUCT USED FOR UNKNOWN INDICATION
  5. HYDROCODONE [Concomitant]
     Active Substance: HYDROCODONE
     Indication: PAIN
  6. CIMZIA [Suspect]
     Active Substance: CERTOLIZUMAB PEGOL
     Indication: CROHN^S DISEASE
  7. HYDROCODONE [Concomitant]
     Active Substance: HYDROCODONE
     Indication: MUSCLE SPASMS

REACTIONS (7)
  - Muscle spasms [Unknown]
  - Arthralgia [Unknown]
  - Syringe issue [Unknown]
  - Product dose omission issue [Unknown]
  - Pain [Unknown]
  - Product use in unapproved indication [Unknown]
  - Psoriasis [Unknown]

NARRATIVE: CASE EVENT DATE: 2021
